FAERS Safety Report 4384829-4 (Version None)
Quarter: 2004Q2

REPORT INFORMATION
  Report Type: 
  Country: None (occurrence: None)
  Receive Date: 20040621
  Receipt Date: 20040607
  Transmission Date: 20050107
  Serious: Yes (Hospitalization, Other)
  Sender: FDA-Public Use
  Company Number: HQWYE286007JUN04

PATIENT
  Age: 47 Year
  Sex: Female

DRUGS (6)
  1. ADVIL [Suspect]
     Dosage: 6 TABLETS DAILY ORAL
     Route: 048
     Dates: end: 20040429
  2. IMOVANE (ZOPICLONE) [Concomitant]
  3. PROZAC [Concomitant]
  4. FUROSEMIDE [Concomitant]
  5. ALDACTONE [Concomitant]
  6. BROMAZEPAM [Concomitant]

REACTIONS (9)
  - ANAEMIA [None]
  - BLOOD CALCIUM DECREASED [None]
  - BLOOD POTASSIUM DECREASED [None]
  - DUODENAL ULCER [None]
  - GASTRIC ULCER HAEMORRHAGE [None]
  - GASTRITIS EROSIVE [None]
  - OESOPHAGITIS [None]
  - RENAL FAILURE ACUTE [None]
  - SELF-MEDICATION [None]
